FAERS Safety Report 24705996 (Version 3)
Quarter: 2024Q4

REPORT INFORMATION
  Report Type: Report from Study
  Country: CN (occurrence: CN)
  Receive Date: 20241206
  Receipt Date: 20241223
  Transmission Date: 20250115
  Serious: Yes (Hospitalization, Other)
  Sender: PFIZER
  Company Number: CN-TAKEDA-2022TUS090049

PATIENT
  Age: 18 Year
  Sex: Female
  Weight: 50 kg

DRUGS (12)
  1. ADCETRIS [Suspect]
     Active Substance: BRENTUXIMAB VEDOTIN
     Indication: Nodular lymphocyte predominant Hodgkin lymphoma
     Dosage: 50 MILLIGRAM, Q2WEEKS
     Route: 041
     Dates: start: 20221114
  2. ADCETRIS [Suspect]
     Active Substance: BRENTUXIMAB VEDOTIN
     Dosage: 50 MILLIGRAM, Q2WEEKS
     Route: 041
     Dates: start: 20221128
  3. EPIRUBICIN HYDROCHLORIDE [Suspect]
     Active Substance: EPIRUBICIN HYDROCHLORIDE
     Indication: Lymphoma
     Dosage: 50 MILLIGRAM, QD
     Route: 041
     Dates: start: 20221114
  4. VINDESINE [Suspect]
     Active Substance: VINDESINE
     Indication: Lymphoma
     Dosage: 4 MILLIGRAM, QD
     Route: 041
     Dates: start: 20221114
  5. DACARBAZINE [Suspect]
     Active Substance: DACARBAZINE
     Indication: Lymphoma
     Dosage: 547 MILLIGRAM, QD
     Route: 041
     Dates: start: 20221114
  6. ACYCLOVIR [Concomitant]
     Active Substance: ACYCLOVIR
     Indication: Antiviral prophylaxis
     Dosage: UNK UNK, BID
     Route: 048
     Dates: start: 20221114
  7. CEFACLOR [Concomitant]
     Active Substance: CEFACLOR
     Indication: Antiviral prophylaxis
     Dosage: 375 MILLIGRAM, BID (SUSPENSION)
     Route: 048
     Dates: start: 20221114
  8. SULFAMETHOXAZOLE [Concomitant]
     Active Substance: SULFAMETHOXAZOLE
     Indication: Antifungal prophylaxis
     Dosage: 0.48 GRAM, QD
     Route: 048
     Dates: start: 20221114
  9. LEUCOGEN [Concomitant]
     Active Substance: LEUCOGEN
     Indication: Prophylaxis
     Dosage: UNK UNK, TID
     Route: 048
     Dates: start: 20221115
  10. OMEPRAZOLE [Concomitant]
     Active Substance: OMEPRAZOLE
     Indication: Prophylaxis
     Dosage: 20 MILLIGRAM, QD
     Route: 048
     Dates: start: 20221114
  11. PALONOSETRON HYDROCHLORIDE [Concomitant]
     Active Substance: PALONOSETRON HYDROCHLORIDE
     Indication: Prophylaxis of nausea and vomiting
     Dosage: 0.5 MILLIGRAM, QD
     Route: 048
     Dates: start: 20221114
  12. DEXAMETHASONE [Concomitant]
     Active Substance: DEXAMETHASONE
     Indication: Prophylaxis
     Dosage: 5 MILLIGRAM, QD
     Route: 041
     Dates: start: 20221114, end: 20221114

REACTIONS (6)
  - Pneumonia [Recovered/Resolved]
  - Aspartate aminotransferase increased [Recovered/Resolved]
  - White blood cell count decreased [Recovering/Resolving]
  - Neutrophil count decreased [Recovered/Resolved]
  - Alanine aminotransferase increased [Recovered/Resolved]
  - Off label use [Recovered/Resolved]

NARRATIVE: CASE EVENT DATE: 20221114
